FAERS Safety Report 4986473-4 (Version None)
Quarter: 2006Q2

REPORT INFORMATION
  Report Type: 
  Country: None (occurrence: None)
  Receive Date: 20060428
  Receipt Date: 20060419
  Transmission Date: 20061013
  Serious: Yes (Other)
  Sender: FDA-Public Use
  Company Number: FR-ROCHE-445178

PATIENT
  Age: 41 Year
  Sex: Female

DRUGS (2)
  1. ROCEPHIN [Suspect]
     Indication: RENAL ABSCESS
     Route: 030
     Dates: end: 20060215
  2. OFLOCET [Suspect]
     Indication: RENAL ABSCESS
     Route: 030
     Dates: end: 20060209

REACTIONS (3)
  - FATIGUE [None]
  - HYPOAESTHESIA [None]
  - MYALGIA [None]
